FAERS Safety Report 6041883-1 (Version None)
Quarter: 2009Q1

REPORT INFORMATION
  Report Type: 
  Country: None (occurrence: None)
  Receive Date: 20090116
  Receipt Date: 20090108
  Transmission Date: 20090719
  Serious: Yes (Other)
  Sender: FDA-Public Use
  Company Number: CA-ASTRAZENECA-2009UW01012

PATIENT
  Age: 75 Year
  Sex: Male

DRUGS (4)
  1. CRESTOR [Suspect]
     Indication: BLOOD CHOLESTEROL INCREASED
     Route: 048
  2. METFORMIN HCL [Concomitant]
     Indication: DIABETES MELLITUS
     Route: 048
  3. AVANDIA [Concomitant]
     Indication: DIABETES MELLITUS
  4. EFFEXOR [Concomitant]
     Indication: ANXIETY

REACTIONS (2)
  - DIABETIC EYE DISEASE [None]
  - DIPLOPIA [None]
